FAERS Safety Report 10415677 (Version 1)
Quarter: 2014Q3

REPORT INFORMATION
  Report Type: Spontaneous
  Country: US (occurrence: None)
  Receive Date: 20140827
  Receipt Date: 20140827
  Transmission Date: 20150326
  Serious: Yes (Hospitalization)
  Sender: FDA-Public Use
  Company Number: None

PATIENT
  Age: 64 Year
  Sex: Female
  Weight: 63 kg

DRUGS (1)
  1. CISPLATIN. [Suspect]
     Active Substance: CISPLATIN
     Dosage: D1, 8 OF 28D CYCLES
     Route: 042

REACTIONS (5)
  - Hypotension [None]
  - Cough [None]
  - Dyspnoea [None]
  - Tachycardia [None]
  - Dysphagia [None]

NARRATIVE: CASE EVENT DATE: 20140707
